FAERS Safety Report 5167243-3 (Version None)
Quarter: 2006Q4

REPORT INFORMATION
  Report Type: 
  Country: None (occurrence: None)
  Receive Date: 20061207
  Receipt Date: 20061204
  Transmission Date: 20070319
  Serious: Yes (Death)
  Sender: FDA-Public Use
  Company Number: US-ROXANE LABORATORIES, INC-2006-DE-06460GD

PATIENT

DRUGS (2)
  1. PREDNISONE TAB [Suspect]
     Indication: INTERSTITIAL LUNG DISEASE
  2. PREDNISONE TAB [Suspect]
     Indication: SJOGREN'S SYNDROME

REACTIONS (2)
  - PYELONEPHRITIS ACUTE [None]
  - SEPTIC SHOCK [None]
